FAERS Safety Report 6090995-5 (Version None)
Quarter: 2009Q1

REPORT INFORMATION
  Report Type: 
  Country: None (occurrence: None)
  Receive Date: 20090218
  Receipt Date: 20090218
  Transmission Date: 20090719
  Serious: No
  Sender: FDA-Public Use
  Company Number: None

PATIENT
  Sex: Female
  Weight: 74.8435 kg

DRUGS (2)
  1. LYRICA [Suspect]
     Indication: NEURALGIA
     Dosage: 50 MG BID PO
     Route: 048
     Dates: start: 20081001, end: 20081201
  2. LYRICA [Suspect]
     Indication: NEURALGIA
     Dosage: 75 MG BID PO
     Route: 048
     Dates: start: 20081201, end: 20090114

REACTIONS (4)
  - ABNORMAL DREAMS [None]
  - ABNORMAL SLEEP-RELATED EVENT [None]
  - POOR QUALITY SLEEP [None]
  - VISION BLURRED [None]
